FAERS Safety Report 19718820 (Version 3)
Quarter: 2022Q1

REPORT INFORMATION
  Report Type: Report from Study
  Country: US (occurrence: US)
  Receive Date: 20210818
  Receipt Date: 20220218
  Transmission Date: 20220423
  Serious: Yes (Other)
  Sender: FDA-Public Use
  Company Number: US-IPSEN BIOPHARMACEUTICALS, INC.-2021-19806

PATIENT
  Age: 63 Year
  Sex: Male

DRUGS (2)
  1. SOMATULINE DEPOT [Suspect]
     Active Substance: LANREOTIDE ACETATE
     Indication: Carcinoid tumour of the small bowel
     Dosage: 120 MG
     Route: 058
     Dates: start: 2004
  2. SOMATULINE DEPOT [Suspect]
     Active Substance: LANREOTIDE ACETATE
     Indication: Carcinoid tumour of the liver

REACTIONS (6)
  - Disease progression [Unknown]
  - Positron emission tomogram abnormal [Unknown]
  - Seasonal allergy [Unknown]
  - Irritable bowel syndrome [Unknown]
  - Abdominal distension [Unknown]
  - Diarrhoea [Unknown]
